FAERS Safety Report 5001422-0 (Version None)
Quarter: 2006Q2

REPORT INFORMATION
  Report Type: 
  Country: None (occurrence: None)
  Receive Date: 20060512
  Receipt Date: 20050802
  Transmission Date: 20061013
  Serious: Yes (Hospitalization, Other)
  Sender: FDA-Public Use
  Company Number: US-MERCK-0508USA00977

PATIENT
  Age: 71 Year
  Sex: Male
  Weight: 109 kg

DRUGS (16)
  1. VIOXX [Suspect]
     Indication: ARTHRITIS
     Route: 048
     Dates: start: 20020601, end: 20041101
  2. LASIX [Concomitant]
     Route: 065
     Dates: start: 20010101
  3. [THERAPY UNSPECIFIED] [Concomitant]
     Route: 065
     Dates: start: 19980101
  4. FERROUS SULFATE [Concomitant]
     Route: 065
  5. GLUCOVANCE [Concomitant]
     Route: 065
  6. LIPITOR [Concomitant]
     Indication: HYPERLIPIDAEMIA
     Route: 065
     Dates: start: 20020101
  7. ALEVE (CAPLET) [Concomitant]
     Route: 065
     Dates: start: 20020101
  8. RANITIDINE [Concomitant]
     Indication: DYSPEPSIA
     Route: 065
  9. FLUDROCORTISONE [Concomitant]
     Indication: HYPOTENSION
     Route: 065
  10. CARBIDOPA [Concomitant]
     Indication: PARKINSON'S DISEASE
     Route: 065
  11. COUMADIN [Concomitant]
     Route: 065
     Dates: start: 19980101
  12. FLOMAX [Concomitant]
     Route: 065
  13. LANOXIN [Concomitant]
     Route: 065
  14. HUMULIN 70/30 [Concomitant]
     Route: 065
  15. INSULIN HUMAN [Concomitant]
     Route: 065
  16. VITAMINS (UNSPECIFIED) [Concomitant]
     Route: 065

REACTIONS (7)
  - BLADDER DISORDER [None]
  - BLADDER POLYPECTOMY [None]
  - CARDIAC DISORDER [None]
  - CAROTID ARTERY DISEASE [None]
  - CEREBROVASCULAR ACCIDENT [None]
  - MYOCARDIAL INFARCTION [None]
  - POLYPECTOMY [None]
